FAERS Safety Report 6715931-7 (Version None)
Quarter: 2010Q2

REPORT INFORMATION
  Report Type: 
  Country: None (occurrence: None)
  Receive Date: 20100507
  Receipt Date: 20100505
  Transmission Date: 20101027
  Serious: Yes (Death, Hospitalization)
  Sender: FDA-Public Use
  Company Number: PHHY2010US27583

PATIENT
  Sex: Male
  Weight: 147.39 kg

DRUGS (1)
  1. EXJADE [Suspect]
     Dosage: 3000 MG, QD
     Route: 048
     Dates: start: 20091127

REACTIONS (3)
  - COLITIS [None]
  - SEPSIS [None]
  - SURGERY [None]
